FAERS Safety Report 10659444 (Version 3)
Quarter: 2015Q1

REPORT INFORMATION
  Report Type: Spontaneous
  Country: US (occurrence: US)
  Receive Date: 20141217
  Receipt Date: 20150112
  Transmission Date: 20150720
  Serious: Yes (Other)
  Sender: FDA-Public Use
  Company Number: ALCN2014US006743

PATIENT
  Age: 70 Year
  Sex: Male

DRUGS (5)
  1. MAXITROL [Suspect]
     Active Substance: DEXAMETHASONE\NEOMYCIN SULFATE\POLYMYXIN B SULFATE
     Indication: INTRAOCULAR LENS IMPLANT
     Dosage: 1 UNK, UNK
     Route: 047
     Dates: start: 20141014, end: 20141014
  2. GENTAMICIN SULFATE. [Suspect]
     Active Substance: GENTAMICIN SULFATE
     Indication: INTRAOCULAR LENS IMPLANT
     Dosage: 1 UNK, UNK
     Route: 047
     Dates: start: 20141014, end: 20141014
  3. BETADINE [Suspect]
     Active Substance: POVIDONE-IODINE
     Indication: INTRAOCULAR LENS IMPLANT
     Dosage: 1 UNK, UNK
     Route: 047
     Dates: start: 20141014, end: 20141014
  4. TETRACAINE STERI-UNITS [Suspect]
     Active Substance: TETRACAINE\TETRACAINE HYDROCHLORIDE
     Indication: INTRAOCULAR LENS IMPLANT
     Dosage: 1 UNK, UNK
     Route: 047
     Dates: start: 20141014, end: 20141014
  5. BSS [Suspect]
     Active Substance: CALCIUM CHLORIDE\MAGNESIUM CHLORIDE\POTASSIUM CHLORIDE\SODIUM ACETATE\SODIUM CHLORIDE\SODIUM CITRATE
     Indication: INTRAOCULAR LENS IMPLANT
     Dosage: 1 UNK, UNK
     Route: 065
     Dates: start: 20141014, end: 20141014

REACTIONS (1)
  - Endophthalmitis [Recovered/Resolved]

NARRATIVE: CASE EVENT DATE: 20141022
